FAERS Safety Report 8913104 (Version 1)
Quarter: 2012Q4

REPORT INFORMATION
  Report Type: 
  Country: US (occurrence: US)
  Receive Date: 20121119
  Receipt Date: 20121119
  Transmission Date: 20130627
  Serious: Yes (Other)
  Sender: FDA-Public Use
  Company Number: PHEH2012US022517

PATIENT
  Sex: Female

DRUGS (8)
  1. DIOVAN HCT [Suspect]
     Indication: HYPERTENSION
     Dosage: 1 DF (320 mg vals, 12.5 mg HCTZ), daily
     Route: 048
     Dates: end: 20121018
  2. DIOVAN HCT [Suspect]
     Dosage: 1 DF, (320 mg vals/ 25 mg HCTZ ) daily
     Route: 048
     Dates: start: 12121019
  3. CRESTOR [Concomitant]
  4. METFORMIN [Concomitant]
  5. OSTEO BI-FLEX [Concomitant]
  6. OMEGA 3 6 9 [Concomitant]
  7. CENTRUM SILVER [Concomitant]
  8. CALCIUM WITH VIT D [Concomitant]

REACTIONS (1)
  - Diabetes mellitus [Recovering/Resolving]
